FAERS Safety Report 4297520-X (Version None)
Quarter: 2004Q1

REPORT INFORMATION
  Report Type: 
  Country: None (occurrence: None)
  Receive Date: 20040217
  Receipt Date: 20040217
  Transmission Date: 20041129
  Serious: No
  Sender: FDA-Public Use
  Company Number: None

PATIENT
  Sex: Male
  Weight: 39.4629 kg

DRUGS (2)
  1. PANGLOBULIN [Suspect]
     Dosage: 18 G IV Q 3 WK
     Route: 042
     Dates: start: 20040121
  2. PANGLOBULIN [Suspect]
     Dosage: 18 G IV Q 3 WK
     Route: 042
     Dates: start: 20040211

REACTIONS (2)
  - EPIGASTRIC DISCOMFORT [None]
  - SPLENOMEGALY [None]
